FAERS Safety Report 14455620 (Version 1)
Quarter: 2018Q1

REPORT INFORMATION
  Report Type: Spontaneous
  Country: US (occurrence: US)
  Receive Date: 20180129
  Receipt Date: 20180129
  Transmission Date: 20180509
  Serious: No
  Sender: FDA-Public Use
  Company Number: US-TORRENT-00001354

PATIENT
  Age: 70 Year
  Sex: Female
  Weight: 65 kg

DRUGS (1)
  1. MINOCYCLINE HYDROCHLORIDE CAPSULE [Suspect]
     Active Substance: MINOCYCLINE HYDROCHLORIDE
     Indication: FOLLICULITIS
     Dosage: BID
     Route: 048
     Dates: end: 20170101

REACTIONS (15)
  - Pain [Recovered/Resolved]
  - Micturition frequency decreased [Unknown]
  - Muscular weakness [Unknown]
  - Weight increased [Unknown]
  - Fluid retention [Not Recovered/Not Resolved]
  - Polydipsia [Unknown]
  - Peripheral swelling [Not Recovered/Not Resolved]
  - Mouth swelling [Recovering/Resolving]
  - Localised infection [Recovered/Resolved]
  - Myalgia [Recovered/Resolved]
  - Mouth injury [Recovering/Resolving]
  - Vision blurred [Not Recovered/Not Resolved]
  - Mental disorder [Unknown]
  - Weight decreased [Unknown]
  - Arthralgia [Recovered/Resolved]

NARRATIVE: CASE EVENT DATE: 20170115
